FAERS Safety Report 12265713 (Version 3)
Quarter: 2016Q2

REPORT INFORMATION
  Report Type: Report from Study
  Country: US (occurrence: US)
  Receive Date: 20160413
  Receipt Date: 20160518
  Transmission Date: 20160815
  Serious: Yes (Hospitalization)
  Sender: FDA-Public Use
  Company Number: US-ACTELION-A-NJ2016-134308

PATIENT
  Age: 59 Year
  Sex: Female

DRUGS (2)
  1. MACITENTAN [Suspect]
     Active Substance: MACITENTAN
     Indication: PULMONARY ARTERIAL HYPERTENSION
     Dosage: 10 MG, QD
     Route: 048
     Dates: start: 20140430
  2. ADCIRCA [Concomitant]
     Active Substance: TADALAFIL

REACTIONS (9)
  - Neck surgery [Unknown]
  - Pulmonary pain [Unknown]
  - Dysphonia [Unknown]
  - Asthenia [Unknown]
  - Pneumonia [Unknown]
  - Feeling abnormal [Unknown]
  - Cough [Unknown]
  - Fatigue [Unknown]
  - Vascular operation [Unknown]
